FAERS Safety Report 10681483 (Version 2)
Quarter: 2015Q1

REPORT INFORMATION
  Report Type: Spontaneous
  Country: US (occurrence: US)
  Receive Date: 20141230
  Receipt Date: 20150126
  Transmission Date: 20150720
  Serious: Yes (Hospitalization)
  Sender: FDA-Public Use
  Company Number: US-009507513-1412USA012605

PATIENT
  Age: 67 Year
  Sex: Female

DRUGS (1)
  1. INTRON A [Suspect]
     Active Substance: INTERFERON ALFA-2B
     Dosage: 25 MILLION IU, TID
     Dates: start: 201401, end: 201410

REACTIONS (1)
  - Arthritis infective [Recovering/Resolving]

NARRATIVE: CASE EVENT DATE: 201411
